FAERS Safety Report 5329330-6 (Version None)
Quarter: 2007Q2

REPORT INFORMATION
  Report Type: 
  Country: None (occurrence: None)
  Receive Date: 20070518
  Receipt Date: 20070510
  Transmission Date: 20071010
  Serious: Yes (Other)
  Sender: FDA-Public Use
  Company Number: FR-PFIZER INC-2007038214

PATIENT
  Age: 58 Year
  Sex: Male

DRUGS (1)
  1. CHAMPIX [Suspect]

REACTIONS (5)
  - CRYING [None]
  - MAJOR DEPRESSION [None]
  - MORBID THOUGHTS [None]
  - SLEEP DISORDER [None]
  - SUICIDAL IDEATION [None]
